FAERS Safety Report 8298014-7 (Version None)
Quarter: 2012Q2

REPORT INFORMATION
  Report Type: 
  Country: None (occurrence: None)
  Receive Date: 20120419
  Receipt Date: 20120411
  Transmission Date: 20120825
  Serious: No
  Sender: FDA-Public Use
  Company Number: US-BAYER-2012-036233

PATIENT
  Age: 66 Year
  Sex: Male
  Weight: 90.703 kg

DRUGS (1)
  1. ALEVE (CAPLET) [Suspect]
     Indication: ARTHRITIS
     Dosage: 3 CAPLETS ONCE DAILY
     Route: 048
     Dates: start: 20120307

REACTIONS (1)
  - NO ADVERSE EVENT [None]
